FAERS Safety Report 7418952-4 (Version None)
Quarter: 2011Q2

REPORT INFORMATION
  Report Type: 
  Country: None (occurrence: None)
  Receive Date: 20110415
  Receipt Date: 20110403
  Transmission Date: 20111010
  Serious: Yes (Hospitalization)
  Sender: FDA-Public Use
  Company Number: US-BAYER-200931814NA

PATIENT
  Age: 43 Year
  Sex: Female
  Weight: 102 kg

DRUGS (8)
  1. CALCIUM [Concomitant]
  2. ZOVIRAX [Concomitant]
     Route: 061
  3. YAZ [Suspect]
     Indication: PREMENSTRUAL SYNDROME
  4. RANITIDINE [Concomitant]
     Route: 048
  5. YAZ [Suspect]
     Indication: ACNE
     Dosage: UNK UNK, QD
     Route: 048
     Dates: start: 20070412, end: 20070905
  6. PERCOCET [Concomitant]
     Indication: PAIN
  7. VALTREX [Concomitant]
     Dosage: 500 MG, UNK
     Route: 048
  8. TUMS [Concomitant]
     Dosage: 500 MG, UNK
     Route: 048

REACTIONS (5)
  - EMOTIONAL DISTRESS [None]
  - DEEP VEIN THROMBOSIS [None]
  - PULMONARY EMBOLISM [None]
  - INJURY [None]
  - PAIN [None]
